FAERS Safety Report 6860620-1 (Version None)
Quarter: 2010Q3

REPORT INFORMATION
  Report Type: 
  Country: None (occurrence: None)
  Receive Date: 20100720
  Receipt Date: 20100715
  Transmission Date: 20110219
  Serious: Yes (Hospitalization)
  Sender: FDA-Public Use
  Company Number: FR-ROCHE-715702

PATIENT
  Sex: Male

DRUGS (5)
  1. RIVOTRIL [Suspect]
     Indication: PRODUCT USED FOR UNKNOWN INDICATION
     Route: 048
  2. KETUM [Suspect]
     Dosage: ROUTE: LOCAL
     Route: 050
     Dates: start: 20060715, end: 20060719
  3. IXPRIM [Suspect]
     Indication: URETHRITIS
     Route: 048
  4. IBUPROFEN [Suspect]
     Indication: URETHRITIS
     Route: 048
  5. PROZAC [Suspect]
     Indication: PRODUCT USED FOR UNKNOWN INDICATION
     Route: 065

REACTIONS (4)
  - CHOLESTASIS [None]
  - CYTOLYTIC HEPATITIS [None]
  - DERMATITIS CONTACT [None]
  - PHOTOSENSITIVITY ALLERGIC REACTION [None]
